FAERS Safety Report 15489442 (Version 2)
Quarter: 2018Q4

REPORT INFORMATION
  Report Type: Spontaneous
  Country: IN (occurrence: IN)
  Receive Date: 20181011
  Receipt Date: 20181109
  Transmission Date: 20190205
  Serious: Yes (Death)
  Sender: FDA-Public Use
  Company Number: IN-PFIZER INC-2018406263

PATIENT
  Age: 46 Year
  Sex: Male

DRUGS (1)
  1. CAMPTO [Suspect]
     Active Substance: IRINOTECAN
     Indication: COLON CANCER
     Dosage: 300 MG, UNK
     Route: 042
     Dates: start: 20180918

REACTIONS (1)
  - Death [Fatal]

NARRATIVE: CASE EVENT DATE: 20180925
